FAERS Safety Report 19710343 (Version 1)
Quarter: 2021Q3

REPORT INFORMATION
  Report Type: Spontaneous
  Country: US (occurrence: US)
  Receive Date: 20210816
  Receipt Date: 20210816
  Transmission Date: 20211014
  Serious: Yes (Hospitalization)
  Sender: FDA-Public Use
  Company Number: US-JNJFOC-20210805318

PATIENT
  Age: 50 Year
  Sex: Female
  Weight: 78.5 kg

DRUGS (6)
  1. AMITRIPTYLINE [Suspect]
     Active Substance: AMITRIPTYLINE
     Indication: SUICIDE ATTEMPT
     Dosage: 50 MG FROM 72 MONTHS
     Route: 065
  2. ASCRIPTIN [Concomitant]
     Active Substance: ASPIRIN
     Indication: PRODUCT USED FOR UNKNOWN INDICATION
     Dosage: UNKNOWN DOSE
     Route: 065
  3. TIMENTIN [CLAVULANATE POTASSIUM;TICARCILLIN DISODIUM] [Concomitant]
     Indication: PROPHYLAXIS
     Route: 065
  4. LORTAB [Suspect]
     Active Substance: ACETAMINOPHEN\HYDROCODONE BITARTRATE
     Indication: PRODUCT USED FOR UNKNOWN INDICATION
     Route: 065
  5. CLINDAMYCIN. [Concomitant]
     Active Substance: CLINDAMYCIN
     Indication: PROPHYLAXIS
     Route: 065
  6. TYLENOL [Suspect]
     Active Substance: ACETAMINOPHEN
     Indication: SUICIDE ATTEMPT
     Dosage: UNKNOWN DOSE AS REQUIRED
     Route: 048

REACTIONS (13)
  - Blood creatinine increased [Recovered/Resolved]
  - Blood calcium decreased [Recovered/Resolved]
  - PO2 decreased [Recovered/Resolved]
  - Blood potassium decreased [Recovered/Resolved]
  - Blood phosphorus decreased [Recovered/Resolved]
  - White blood cell count increased [Recovered/Resolved]
  - PCO2 increased [Recovered/Resolved]
  - Oxygen saturation decreased [Recovered/Resolved]
  - Blood bicarbonate increased [Recovered/Resolved]
  - Suicide attempt [Recovered/Resolved]
  - Intentional overdose [Recovered/Resolved]
  - Acute hepatic failure [Recovered/Resolved]
  - Blood magnesium decreased [Recovered/Resolved]

NARRATIVE: CASE EVENT DATE: 20030129
